FAERS Safety Report 12176010 (Version 1)
Quarter: 2016Q1

REPORT INFORMATION
  Report Type: Report from Study
  Country: SE (occurrence: SE)
  Receive Date: 20160314
  Receipt Date: 20160314
  Transmission Date: 20160526
  Serious: Yes (Hospitalization)
  Sender: FDA-Public Use
  Company Number: SE-ABBVIE-16P-150-1580139-00

PATIENT
  Age: 74 Year
  Sex: Male

DRUGS (1)
  1. DUODOPA [Suspect]
     Active Substance: CARBIDOPA\LEVODOPA
     Indication: PARKINSON^S DISEASE
     Dosage: ON AND OFF DUODOPA TREATMENT
     Route: 050
     Dates: start: 20151027, end: 201603

REACTIONS (3)
  - Gastrostomy [Recovering/Resolving]
  - Procedural pain [Not Recovered/Not Resolved]
  - Medical device removal [Recovering/Resolving]

NARRATIVE: CASE EVENT DATE: 20160304
